FAERS Safety Report 9846373 (Version 1)
Quarter: 2014Q1

REPORT INFORMATION
  Report Type: Spontaneous
  Country: FR (occurrence: FR)
  Receive Date: 20140127
  Receipt Date: 20140127
  Transmission Date: 20141002
  Serious: Yes (Other)
  Sender: FDA-Public Use
  Company Number: FR-JNJFOC-20140109723

PATIENT
  Age: 7 Year
  Sex: Male

DRUGS (6)
  1. HALDOL [Suspect]
     Indication: ANXIETY
     Route: 048
     Dates: start: 20110510
  2. HALDOL [Suspect]
     Indication: HALLUCINATION, AUDITORY
     Route: 048
     Dates: start: 20110510
  3. HALDOL [Suspect]
     Indication: AGITATION
     Route: 048
     Dates: start: 20110510
  4. TERCIAN [Suspect]
     Indication: HALLUCINATION, AUDITORY
     Dosage: 40 MG/ML
     Route: 048
     Dates: start: 20090217
  5. TERCIAN [Suspect]
     Indication: ANXIETY
     Dosage: 40 MG/ML
     Route: 048
     Dates: start: 20090217
  6. TERCIAN [Suspect]
     Indication: AGITATION
     Dosage: 40 MG/ML
     Route: 048
     Dates: start: 20090217

REACTIONS (1)
  - Diabetes mellitus [Unknown]
